FAERS Safety Report 8996947 (Version 1)
Quarter: 2012Q4

REPORT INFORMATION
  Report Type: Spontaneous
  Country: FR (occurrence: None)
  Receive Date: 20121220
  Receipt Date: 20121220
  Transmission Date: 20130627
  Serious: Yes (Other)
  Sender: FDA-Public Use
  Company Number: TPA2012A09725

PATIENT
  Age: 82 Year
  Sex: Male

DRUGS (4)
  1. ADENURIC (FEBUXOSTAT) [Suspect]
     Indication: HYPERURICEMIA
     Dosage: (80 mg, 1 in 1 D)
     Route: 048
     Dates: start: 20101026, end: 20111202
  2. ALPRESS (PRAZOSIN HYDROCHLORIDE) [Concomitant]
  3. COAPROVEL(HYDROCHLOROTHIAZIDE, IRBESARTAN) [Concomitant]
  4. SERETIDE(FLUTICASONE PROPIONATE, SALMETEROL XINAFOATE) [Concomitant]

REACTIONS (3)
  - Biliary dilatation [None]
  - Cholestasis [None]
  - Pruritus [None]
